FAERS Safety Report 23621386 (Version 1)
Quarter: 2024Q1

REPORT INFORMATION
  Report Type: Other
  Country: IN (occurrence: IN)
  Receive Date: 20240312
  Receipt Date: 20240312
  Transmission Date: 20240410
  Serious: Yes (Other)
  Sender: FDA-Public Use
  Company Number: IN-B.Braun Medical Inc.-2154265

PATIENT
  Age: 37 Year
  Sex: Male

DRUGS (1)
  1. METRONIDAZOLE [Suspect]
     Active Substance: METRONIDAZOLE

REACTIONS (12)
  - Off label use [Recovering/Resolving]
  - Neurotoxicity [Recovering/Resolving]
  - Postural tremor [Recovering/Resolving]
  - Reduced facial expression [Recovering/Resolving]
  - Nystagmus [Recovering/Resolving]
  - Ataxia [Recovering/Resolving]
  - Disturbance in attention [Recovering/Resolving]
  - Anger [Recovering/Resolving]
  - Muscular weakness [Recovering/Resolving]
  - Balance disorder [Recovering/Resolving]
  - Hypoaesthesia [Recovering/Resolving]
  - Paraesthesia [Recovering/Resolving]
